FAERS Safety Report 4513132-4 (Version None)
Quarter: 2004Q4

REPORT INFORMATION
  Report Type: 
  Country: None (occurrence: None)
  Receive Date: 20041124
  Receipt Date: 20041111
  Transmission Date: 20050328
  Serious: Yes (Hospitalization)
  Sender: FDA-Public Use
  Company Number: HQWYE461115NOV04

PATIENT
  Age: 24 Year
  Sex: Female

DRUGS (4)
  1. EFFEXOR XR [Suspect]
     Indication: DEPRESSION
     Dosage: DOSE DAILY, ORAL
     Route: 048
     Dates: end: 20020101
  2. DEPAKOTE [Suspect]
  3. UNSPECIFIED ANTIDEPRESSANT (UNSPECIFIED ANTIDEPRESSANT) [Concomitant]
  4. UNSPECIFIED THYROID MEDICATION (UNSPECIFIED THYROID MEDICATION) [Concomitant]

REACTIONS (12)
  - BLOOD CREATINE PHOSPHOKINASE INCREASED [None]
  - CEREBRAL DISORDER [None]
  - DIFFICULTY IN WALKING [None]
  - ELECTROENCEPHALOGRAM ABNORMAL [None]
  - HEPATIC ENZYME INCREASED [None]
  - MUSCLE DISORDER [None]
  - NEUROLEPTIC MALIGNANT SYNDROME [None]
  - OEDEMA [None]
  - PNEUMONIA ASPIRATION [None]
  - PSYCHOTIC DISORDER [None]
  - URINARY TRACT INFECTION [None]
  - WEIGHT DECREASED [None]
